FAERS Safety Report 6220534-7 (Version None)
Quarter: 2009Q2

REPORT INFORMATION
  Report Type: 
  Country: None (occurrence: None)
  Receive Date: 20090610
  Receipt Date: 20090529
  Transmission Date: 20091009
  Serious: Yes (Other)
  Sender: FDA-Public Use
  Company Number: GB-AMGEN-US349996

PATIENT
  Sex: Female
  Weight: 60.3 kg

DRUGS (2)
  1. ENBREL [Suspect]
     Indication: RHEUMATOID ARTHRITIS
     Dosage: 25MG (FREQUENCY UNKNOWN)
     Route: 058
  2. HUMIRA [Suspect]
     Indication: DRUG USE FOR UNKNOWN INDICATION
     Dosage: UNKNOWN
     Route: 065

REACTIONS (3)
  - FALL [None]
  - HUMERUS FRACTURE [None]
  - ULNA FRACTURE [None]
